FAERS Safety Report 7637924-8 (Version None)
Quarter: 2011Q3

REPORT INFORMATION
  Report Type: 
  Country: None (occurrence: None)
  Receive Date: 20110727
  Receipt Date: 20110719
  Transmission Date: 20111222
  Serious: Yes (Hospitalization, Other)
  Sender: FDA-Public Use
  Company Number: US-BAYER-201020519NA

PATIENT
  Age: 19 Year
  Sex: Female
  Weight: 78.182 kg

DRUGS (18)
  1. YAZ [Suspect]
     Indication: ACNE
  2. YASMIN [Suspect]
     Indication: CONTRACEPTION
     Route: 048
     Dates: start: 20060801, end: 20090401
  3. VALTREX [Concomitant]
  4. LORCET-HD [Concomitant]
     Dosage: UNK
     Dates: start: 20080401
  5. YAZ [Suspect]
     Indication: MENSTRUATION IRREGULAR
  6. ALBUTEROL SULFATE AUTOHALER [Concomitant]
     Dosage: UNK UNK, PRN
  7. LEVAQUIN [Concomitant]
     Dosage: 500 MG, UNK
     Route: 048
  8. BETAMETHACORT DIPROPIONATE [Concomitant]
  9. YAZ [Suspect]
     Indication: PREMENSTRUAL SYNDROME
  10. YASMIN [Suspect]
     Indication: MENSTRUATION IRREGULAR
  11. AVELOX [Concomitant]
  12. YAZ [Suspect]
     Indication: CONTRACEPTION
     Route: 048
     Dates: start: 20060801, end: 20090401
  13. LEXAPRO [Concomitant]
  14. YASMIN [Suspect]
     Indication: ACNE
  15. YASMIN [Suspect]
     Indication: PREMENSTRUAL SYNDROME
  16. SINGULAIR [Concomitant]
     Dosage: 10 MG, UNK
     Route: 048
  17. SINGULAIR [Concomitant]
     Dosage: UNK
     Dates: start: 20080201
  18. ZYRTEC [Concomitant]

REACTIONS (9)
  - ABDOMINAL PAIN UPPER [None]
  - VOMITING [None]
  - CHOLECYSTITIS CHRONIC [None]
  - CHOLELITHIASIS [None]
  - DEHYDRATION [None]
  - ABDOMINAL DISCOMFORT [None]
  - CELLULITIS [None]
  - WEIGHT INCREASED [None]
  - NAUSEA [None]
